FAERS Safety Report 4408084-1 (Version None)
Quarter: 2004Q3

REPORT INFORMATION
  Report Type: 
  Country: None (occurrence: None)
  Receive Date: 20040722
  Receipt Date: 20040708
  Transmission Date: 20050211
  Serious: No
  Sender: FDA-Public Use
  Company Number: 02100-JPN-04-0198

PATIENT
  Age: 54 Year
  Sex: Female

DRUGS (2)
  1. CILOSTAZOL [Suspect]
     Indication: VENTRICULAR FIBRILLATION
     Dosage: ORAL
     Route: 048
  2. PROPRANOLOL HYDROCHLORIDE [Concomitant]

REACTIONS (4)
  - ELECTROCARDIOGRAM QT PROLONGED [None]
  - ELECTROCARDIOGRAM ST-T CHANGE [None]
  - SYNCOPE [None]
  - VENTRICULAR FIBRILLATION [None]
